FAERS Safety Report 10757869 (Version 1)
Quarter: 2015Q1

REPORT INFORMATION
  Report Type: Spontaneous
  Country: FR (occurrence: FR)
  Receive Date: 20150203
  Receipt Date: 20150203
  Transmission Date: 20150721
  Serious: Yes (Death)
  Sender: FDA-Public Use
  Company Number: FR-SA-2015SA009973

PATIENT
  Age: 64 Year
  Sex: Female
  Weight: 46 kg

DRUGS (7)
  1. FLUDARA [Suspect]
     Active Substance: FLUDARABINE PHOSPHATE
     Indication: CHRONIC LYMPHOCYTIC LEUKAEMIA
     Route: 065
     Dates: start: 20140303, end: 20140626
  2. INEXIUM [Concomitant]
     Active Substance: ESOMEPRAZOLE
  3. MABTHERA [Suspect]
     Active Substance: RITUXIMAB
     Indication: CHRONIC LYMPHOCYTIC LEUKAEMIA
     Route: 065
     Dates: start: 20140303, end: 20140626
  4. LEDERFOLINE [Concomitant]
     Active Substance: LEUCOVORIN CALCIUM
  5. ZELITREX [Concomitant]
     Active Substance: VALACYCLOVIR HYDROCHLORIDE
  6. BACTRIM [Concomitant]
     Active Substance: SULFAMETHOXAZOLE\TRIMETHOPRIM
  7. ENDOXAN [Suspect]
     Active Substance: CYCLOPHOSPHAMIDE
     Indication: CHRONIC LYMPHOCYTIC LEUKAEMIA
     Route: 065
     Dates: start: 20140303, end: 20140626

REACTIONS (6)
  - Diarrhoea [Fatal]
  - Hypotension [Fatal]
  - Neutropenia [Fatal]
  - Hepatomegaly [Fatal]
  - Vomiting [Fatal]
  - Pyrexia [Fatal]

NARRATIVE: CASE EVENT DATE: 20140704
